FAERS Safety Report 9394519 (Version 1)
Quarter: 2013Q3

REPORT INFORMATION
  Report Type: Spontaneous
  Country: US (occurrence: US)
  Receive Date: 20130711
  Receipt Date: 20130711
  Transmission Date: 20140515
  Serious: No
  Sender: FDA-Public Use
  Company Number: US-PFIZER INC-2013203230

PATIENT
  Age: 66 Year
  Sex: Female
  Weight: 80.27 kg

DRUGS (3)
  1. GABAPENTIN [Suspect]
     Indication: SPINAL DISORDER
     Dosage: 300 MG, 1X/DAY
     Dates: end: 201209
  2. GABAPENTIN [Suspect]
     Indication: HEADACHE
  3. METFORMIN [Concomitant]
     Indication: TYPE 2 DIABETES MELLITUS
     Dosage: UNK

REACTIONS (2)
  - Fibromyalgia [Unknown]
  - Off label use [Unknown]
